FAERS Safety Report 8958581 (Version 1)
Quarter: 2012Q4

REPORT INFORMATION
  Report Type: Spontaneous
  Country: US (occurrence: None)
  Receive Date: 20121205
  Receipt Date: 20121205
  Transmission Date: 20130627
  Serious: Yes (Life-Threatening)
  Sender: FDA-Public Use
  Company Number: None

PATIENT
  Age: 61 Year
  Sex: Male
  Weight: 63.5 kg

DRUGS (2)
  1. COMPLERA [Suspect]
     Indication: HIV INFECTION
     Dates: start: 20121008, end: 20121012
  2. COMPLERA [Suspect]
     Indication: AIDS
     Dates: start: 20121008, end: 20121012

REACTIONS (3)
  - Palpitations [None]
  - Dyspnoea [None]
  - Insomnia [None]
